FAERS Safety Report 17966474 (Version 1)
Quarter: 2020Q2

REPORT INFORMATION
  Report Type: Report from Study
  Country: CO (occurrence: CO)
  Receive Date: 20200630
  Receipt Date: 20200630
  Transmission Date: 20200714
  Serious: Yes (Other)
  Sender: FDA-Public Use
  Company Number: NVSC2020CO184027

PATIENT
  Age: 63 Year
  Sex: Male
  Weight: 68 kg

DRUGS (4)
  1. PRAZOSINE [Concomitant]
     Active Substance: PRAZOSIN HYDROCHLORIDE
     Indication: HYPERTENSION
     Dosage: UNK, QD
     Route: 048
     Dates: start: 201912
  2. AMLODIPINE [Suspect]
     Active Substance: AMLODIPINE BESYLATE
     Indication: HYPERTENSION
     Dosage: 10 MG, QD
     Route: 048
     Dates: start: 201912
  3. HYDROMORPHONE [Concomitant]
     Active Substance: HYDROMORPHONE
     Indication: ABDOMINAL PAIN
     Dosage: UNK, PRN
     Route: 048
     Dates: start: 201912
  4. VOTRIENT [Concomitant]
     Active Substance: PAZOPANIB HYDROCHLORIDE
     Indication: RENAL CELL CARCINOMA
     Dosage: 800 MG, QD
     Route: 048
     Dates: start: 20200521

REACTIONS (3)
  - Blood urea abnormal [Unknown]
  - Blood creatinine abnormal [Unknown]
  - Inflammation [Unknown]

NARRATIVE: CASE EVENT DATE: 20200514
